FAERS Safety Report 7064382-7 (Version None)
Quarter: 2010Q4

REPORT INFORMATION
  Report Type: 
  Country: None (occurrence: None)
  Receive Date: 20101027
  Receipt Date: 20101025
  Transmission Date: 20110411
  Serious: Yes (Death)
  Sender: FDA-Public Use
  Company Number: SE-BRISTOL-MYERS SQUIBB COMPANY-15351273

PATIENT
  Age: 7 Decade
  Sex: Male

DRUGS (1)
  1. SPRYCEL [Suspect]
     Dosage: PROBABLY

REACTIONS (1)
  - DEATH [None]
